FAERS Safety Report 15695352 (Version 4)
Quarter: 2019Q3

REPORT INFORMATION
  Report Type: Report from Study
  Country: GR (occurrence: GR)
  Receive Date: 20181206
  Receipt Date: 20190913
  Transmission Date: 20191004
  Serious: Yes (Hospitalization)
  Sender: FDA-Public Use
  Company Number: GR-JNJFOC-20181139469

PATIENT
  Age: 38 Year
  Sex: Female

DRUGS (2)
  1. SIMPONI [Suspect]
     Active Substance: GOLIMUMAB
     Indication: COLITIS ULCERATIVE
     Route: 058
  2. MESALAZINE [Concomitant]
     Active Substance: MESALAMINE
     Route: 048

REACTIONS (3)
  - Abdominal pain [Unknown]
  - Colitis ulcerative [Unknown]
  - Drug ineffective [Recovering/Resolving]

NARRATIVE: CASE EVENT DATE: 20181128
